FAERS Safety Report 9276339 (Version 2)
Quarter: 2013Q2

REPORT INFORMATION
  Report Type: Spontaneous
  Country: IE (occurrence: IE)
  Receive Date: 20130507
  Receipt Date: 20130524
  Transmission Date: 20140414
  Serious: Yes (Other)
  Sender: FDA-Public Use
  Company Number: IE-PFIZER INC-2013138367

PATIENT
  Age: 51 Year
  Sex: Female

DRUGS (2)
  1. CELEBREX [Suspect]
     Indication: INFLAMMATION
     Dosage: 200 MG, 1 DOSE ONLY,
     Route: 048
     Dates: start: 20130419, end: 20130419
  2. PARALIEF [Concomitant]
     Indication: PAIN
     Dosage: 4 G
     Route: 048
     Dates: start: 20130419

REACTIONS (3)
  - Face oedema [Recovered/Resolved]
  - Erythema [Recovered/Resolved]
  - Eye swelling [Recovered/Resolved]
